FAERS Safety Report 8070466-7 (Version None)
Quarter: 2012Q1

REPORT INFORMATION
  Report Type: 
  Country: None (occurrence: None)
  Receive Date: 20120125
  Receipt Date: 20120118
  Transmission Date: 20120608
  Serious: Yes (Death, Hospitalization)
  Sender: FDA-Public Use
  Company Number: US-ELI_LILLY_AND_COMPANY-US201201005997

PATIENT
  Sex: Female

DRUGS (2)
  1. OXALIPLATIN [Concomitant]
  2. GEMZAR [Suspect]
     Dosage: UNK
     Dates: start: 20101014

REACTIONS (2)
  - DEATH [None]
  - IMMUNE TOLERANCE INDUCTION [None]
